FAERS Safety Report 5382352-1 (Version None)
Quarter: 2007Q3

REPORT INFORMATION
  Report Type: 
  Country: None (occurrence: None)
  Receive Date: 20070709
  Receipt Date: 20070703
  Transmission Date: 20080115
  Serious: Yes (Hospitalization)
  Sender: FDA-Public Use
  Company Number: DE-SHR-DE-2007-022458

PATIENT
  Age: 18 Year
  Sex: Male

DRUGS (3)
  1. BETASERON [Suspect]
     Dosage: UNK, UNK
     Route: 058
     Dates: start: 20070201
  2. METHYLPREDNISOLONE [Suspect]
     Dosage: 1000 MG/D, UNK
     Dates: start: 20070606, end: 20070609
  3. METHYLPREDNISOLONE [Suspect]
     Dosage: 1000 MG/D, UNK
     Dates: start: 20070601, end: 20070601

REACTIONS (5)
  - BLOOD GLUCOSE INCREASED [None]
  - BLOOD PRESSURE SYSTOLIC INCREASED [None]
  - MULTIPLE SCLEROSIS [None]
  - MULTIPLE SCLEROSIS RELAPSE [None]
  - NAUSEA [None]
